FAERS Safety Report 4814677-X (Version None)
Quarter: 2005Q4

REPORT INFORMATION
  Report Type: 
  Country: None (occurrence: None)
  Receive Date: 20051028
  Receipt Date: 20051017
  Transmission Date: 20060501
  Serious: Yes (Other)
  Sender: FDA-Public Use
  Company Number: BW-BRISTOL-MYERS SQUIBB COMPANY-13148002

PATIENT
  Age: 22 Year
  Sex: Female

DRUGS (3)
  1. STAVUDINE [Suspect]
     Indication: HIV INFECTION
     Dosage: RESTARTED ON 30-AUG-2005
  2. NEVIRAPINE [Suspect]
     Indication: HIV INFECTION
     Dosage: RESTARTED ON 30-AUG-2005
  3. LAMIVUDINE [Suspect]
     Indication: HIV INFECTION
     Dosage: RESTARTED ON 30-AUG-2005

REACTIONS (4)
  - BLOOD ALKALINE PHOSPHATASE INCREASED [None]
  - NEUROPATHY PERIPHERAL [None]
  - PYREXIA [None]
  - SUBCUTANEOUS ABSCESS [None]
